FAERS Safety Report 5867775-6 (Version None)
Quarter: 2008Q3

REPORT INFORMATION
  Report Type: 
  Country: None (occurrence: None)
  Receive Date: 20080902
  Receipt Date: 20080227
  Transmission Date: 20090109
  Serious: No
  Sender: FDA-Public Use
  Company Number: US-ABBOTT-08P-163-0440225-00

PATIENT
  Sex: Female
  Weight: 97.61 kg

DRUGS (3)
  1. DEPAKOTE ER [Suspect]
     Indication: ANXIETY
     Route: 048
     Dates: start: 20070101
  2. DEPAKOTE ER [Suspect]
     Indication: SLEEP DISORDER THERAPY
  3. SERTRALINE [Concomitant]
     Indication: DEPRESSION
     Route: 048
     Dates: start: 20070101

REACTIONS (3)
  - DIZZINESS [None]
  - FORMICATION [None]
  - STOMACH DISCOMFORT [None]
